FAERS Safety Report 11448542 (Version 1)
Quarter: 2015Q3

REPORT INFORMATION
  Report Type: Spontaneous
  Country: US (occurrence: US)
  Receive Date: 20150902
  Receipt Date: 20150902
  Transmission Date: 20151125
  Serious: Yes (Other)
  Sender: FDA-Public Use
  Company Number: US-ASTRAZENECA-2014SE62998

PATIENT
  Age: 30369 Day
  Sex: Female
  Weight: 52.2 kg

DRUGS (11)
  1. EFIENT [Concomitant]
     Active Substance: PRASUGREL HYDROCHLORIDE
  2. ENALAPRIL [Concomitant]
     Active Substance: ENALAPRIL
  3. SIMVASTATIN. [Concomitant]
     Active Substance: SIMVASTATIN
  4. METOPROLOL [Concomitant]
     Active Substance: METOPROLOL
  5. BYETTA [Suspect]
     Active Substance: EXENATIDE
     Indication: TYPE 2 DIABETES MELLITUS
     Dosage: 250 MCG / 2.4 ML BID
     Route: 058
     Dates: end: 20150818
  6. KLOR-CON [Concomitant]
     Active Substance: POTASSIUM CHLORIDE
  7. METFORMIN HCL [Concomitant]
     Active Substance: METFORMIN HYDROCHLORIDE
  8. FUROSEMIDE. [Concomitant]
     Active Substance: FUROSEMIDE
  9. BYETTA [Suspect]
     Active Substance: EXENATIDE
     Indication: TYPE 2 DIABETES MELLITUS
     Dosage: 10 MCG TWICE DAILY, ALSO 5MCG
     Route: 058
     Dates: start: 2006
  10. BYETTA [Suspect]
     Active Substance: EXENATIDE
     Indication: TYPE 2 DIABETES MELLITUS
     Route: 058
     Dates: start: 2006
  11. ECOTRIN [Concomitant]
     Active Substance: ASPIRIN

REACTIONS (4)
  - Weight decreased [Unknown]
  - Cataract [Not Recovered/Not Resolved]
  - Extra dose administered [Unknown]
  - Drug dose omission [Unknown]

NARRATIVE: CASE EVENT DATE: 20140806
